FAERS Safety Report 11107187 (Version 1)
Quarter: 2015Q2

REPORT INFORMATION
  Report Type: Report from Study
  Country: US (occurrence: US)
  Receive Date: 20150512
  Receipt Date: 20150512
  Transmission Date: 20150821
  Serious: Yes (Other)
  Sender: FDA-Public Use
  Company Number: US-AMGEN-USASL2015044572

PATIENT
  Age: 44 Year
  Sex: Female

DRUGS (1)
  1. ENBREL [Suspect]
     Active Substance: ETANERCEPT
     Indication: JUVENILE IDIOPATHIC ARTHRITIS
     Dosage: UNK
     Route: 065

REACTIONS (6)
  - Juvenile idiopathic arthritis [Unknown]
  - Foetal heart rate decreased [Unknown]
  - Suppressed lactation [Unknown]
  - Cervix disorder [Unknown]
  - Pregnancy [Recovered/Resolved]
  - Induced labour [Unknown]
